FAERS Safety Report 8631969 (Version 2)
Quarter: 2012Q4

REPORT INFORMATION
  Report Type: 
  Country: SE (occurrence: SE)
  Receive Date: 20120625
  Receipt Date: 20121221
  Transmission Date: 20130627
  Serious: Yes (Other)
  Sender: FDA-Public Use
  Company Number: SE-MPIJNJ-2012-04228

PATIENT

DRUGS (15)
  1. VELCADE [Suspect]
     Indication: MULTIPLE MYELOMA
     Dosage: UNK
     Route: 065
     Dates: start: 20110207, end: 201109
  2. CYCLOPHOSPHAMIDE [Concomitant]
     Indication: MULTIPLE MYELOMA
     Dosage: UNK
     Dates: start: 20110207, end: 201109
  3. VINCRISTIN [Concomitant]
     Indication: MULTIPLE MYELOMA
     Dosage: UNK
     Dates: start: 201105
  4. DOXORUBICIN [Concomitant]
     Indication: MULTIPLE MYELOMA
     Dosage: UNK
     Dates: start: 201105
  5. DEXAMETHASONE [Concomitant]
     Indication: MULTIPLE MYELOMA
     Dosage: UNK
     Dates: start: 201105
  6. OXYNORM [Concomitant]
  7. OXYCONTIN [Concomitant]
  8. SIMVASTATIN ARROW [Concomitant]
  9. GABAPENTIN ACTAVIS [Concomitant]
  10. OMEPRAZOL ACTAVIS [Concomitant]
  11. ATARAX                             /00058401/ [Concomitant]
  12. LERGIGAN                           /00033002/ [Concomitant]
  13. DELTISON [Concomitant]
     Dosage: UNK
     Dates: start: 20110207
  14. OXASCAND [Concomitant]
  15. FORLAX [Concomitant]

REACTIONS (2)
  - Papilloedema [Not Recovered/Not Resolved]
  - Optic ischaemic neuropathy [Unknown]
